FAERS Safety Report 4694322-7 (Version None)
Quarter: 2005Q2

REPORT INFORMATION
  Report Type: 
  Country: None (occurrence: None)
  Receive Date: 20050614
  Receipt Date: 20050228
  Transmission Date: 20051028
  Serious: No
  Sender: FDA-Public Use
  Company Number: USA050391964

PATIENT
  Sex: Male

DRUGS (1)
  1. CIALIS [Suspect]
     Dosage: 20 MG

REACTIONS (4)
  - DRUG INEFFECTIVE [None]
  - PENILE PAIN [None]
  - PENIS DISORDER [None]
  - PEYRONIE'S DISEASE [None]
